FAERS Safety Report 16994565 (Version 2)
Quarter: 2021Q4

REPORT INFORMATION
  Report Type: Report from Study
  Country: US (occurrence: US)
  Receive Date: 20191105
  Receipt Date: 20211203
  Transmission Date: 20220303
  Serious: Yes (Other)
  Sender: FDA-Public Use
  Company Number: US-ABBVIE-19K-163-2988377-00

PATIENT
  Age: 42 Year
  Sex: Female

DRUGS (3)
  1. HUMIRA [Suspect]
     Active Substance: ADALIMUMAB
     Indication: Rheumatoid arthritis
     Dosage: CITRATE FREE
     Route: 058
     Dates: end: 2015
  2. HUMIRA [Suspect]
     Active Substance: ADALIMUMAB
     Route: 058
     Dates: end: 2016
  3. HUMIRA [Suspect]
     Active Substance: ADALIMUMAB
     Route: 058
     Dates: end: 2018

REACTIONS (9)
  - Hernia [Recovering/Resolving]
  - Gastric bypass [Recovering/Resolving]
  - Limb injury [Recovering/Resolving]
  - Knee arthroplasty [Recovering/Resolving]
  - Knee arthroplasty [Recovering/Resolving]
  - Rheumatoid arthritis [Recovering/Resolving]
  - Knee arthroplasty [Recovering/Resolving]
  - Osteoporosis [Unknown]
  - Swelling [Unknown]

NARRATIVE: CASE EVENT DATE: 20151201
